FAERS Safety Report 6154498-1 (Version None)
Quarter: 2009Q2

REPORT INFORMATION
  Report Type: 
  Country: None (occurrence: None)
  Receive Date: 20090414
  Receipt Date: 20090408
  Transmission Date: 20091009
  Serious: Yes (Disabling, Other)
  Sender: FDA-Public Use
  Company Number: BR-PFIZER INC-2007101164

PATIENT

DRUGS (5)
  1. LIPITOR [Suspect]
     Indication: HYPERCHOLESTEROLAEMIA
     Route: 048
     Dates: start: 19960101
  2. DILTIAZEM [Suspect]
     Dates: start: 20071101, end: 20071101
  3. BALCOR [Suspect]
     Dates: start: 20070101, end: 20070101
  4. ALL OTHER THERAPEUTIC PRODUCTS [Concomitant]
     Dosage: IMIPRAMINE 20MG + DIAZEPAM 5MG
     Route: 048
  5. SYNTHROID [Concomitant]
     Route: 048

REACTIONS (5)
  - ANTINUCLEAR ANTIBODY POSITIVE [None]
  - DENGUE FEVER [None]
  - HYPERSENSITIVITY [None]
  - MALAISE [None]
  - SWELLING [None]
